FAERS Safety Report 9885578 (Version 4)
Quarter: 2014Q1

REPORT INFORMATION
  Report Type: Report from Study
  Country: IE (occurrence: IE)
  Receive Date: 20140210
  Receipt Date: 20140314
  Transmission Date: 20141002
  Serious: Yes (Other)
  Sender: FDA-Public Use
  Company Number: IE-VERTEX PHARMACEUTICALS INC-2014-000579

PATIENT
  Age: 37 Year
  Sex: Female
  Weight: 51 kg

DRUGS (18)
  1. VX-809 FDC [Suspect]
     Indication: CYSTIC FIBROSIS
     Dosage: 600 MG, QD
     Route: 048
     Dates: start: 20140120
  2. VX-770 FDC [Suspect]
     Indication: CYSTIC FIBROSIS
     Dosage: 250 MG, QAM
     Route: 048
     Dates: start: 20140120
  3. VX-770 [Suspect]
     Indication: CYSTIC FIBROSIS
     Dosage: 250 MG, QPM
     Route: 048
     Dates: start: 20140120
  4. COLOMYCIN [Suspect]
     Indication: INFECTIVE PULMONARY EXACERBATION OF CYSTIC FIBROSIS
     Dosage: 1 DF, TID
     Route: 042
     Dates: start: 20140117
  5. TEMOCILLIN [Suspect]
     Indication: INFECTIVE PULMONARY EXACERBATION OF CYSTIC FIBROSIS
     Dosage: 2 G, BID
     Route: 042
     Dates: start: 20140117
  6. FOSFOMYCIN [Suspect]
     Indication: INFECTIVE PULMONARY EXACERBATION OF CYSTIC FIBROSIS
     Dosage: 4 G, TID
     Route: 042
     Dates: start: 20140117
  7. HEPSAL [Concomitant]
     Indication: INFECTIVE PULMONARY EXACERBATION OF CYSTIC FIBROSIS
     Dosage: 500 IU, TID
     Route: 051
     Dates: start: 20140107
  8. CALCICHEW [Concomitant]
     Indication: HYPOVITAMINOSIS
     Dosage: 1 DF, QD
     Route: 048
     Dates: start: 2013
  9. TOBRAMYCIN [Concomitant]
     Indication: INFECTIVE PULMONARY EXACERBATION OF CYSTIC FIBROSIS
  10. AQUADEKS [Concomitant]
     Indication: HYPOVITAMINOSIS
     Dosage: 2 DF, QD
     Route: 048
     Dates: start: 2011
  11. LANSOPRAZOL [Concomitant]
     Indication: GASTROOESOPHAGEAL REFLUX DISEASE
     Dosage: 20 MG, BID
     Route: 048
     Dates: start: 2009
  12. AVAMYS [Concomitant]
     Indication: SINUSITIS
     Dosage: UNK, PRN
     Route: 045
     Dates: start: 2013
  13. NEILMED SINUS RINSE [Concomitant]
     Indication: SINUSITIS
     Dosage: UNK, PRN
     Route: 045
     Dates: start: 2013
  14. CREON [Concomitant]
     Indication: PANCREATIC INSUFFICIENCY
     Dosage: 10000 UNK, PRN
     Route: 048
     Dates: start: 2013
  15. AZITHROMYCIN [Concomitant]
     Indication: INFECTIVE PULMONARY EXACERBATION OF CYSTIC FIBROSIS
     Dosage: 500 MG, UNK
     Route: 048
     Dates: start: 1990
  16. APIDRA [Concomitant]
     Indication: DIABETES MELLITUS
     Dosage: 4-10 IU
     Route: 058
     Dates: start: 2010
  17. LEVEMIR [Concomitant]
     Indication: DIABETES MELLITUS
     Dosage: 4 ML, UNK
     Route: 058
     Dates: start: 2013
  18. CAYSTON [Concomitant]
     Indication: PSEUDOMONAS INFECTION
     Dosage: 75 MG, TID
     Route: 055
     Dates: start: 2013

REACTIONS (1)
  - Nephrotic syndrome [Recovered/Resolved]
